FAERS Safety Report 9718337 (Version 1)
Quarter: 2013Q4

REPORT INFORMATION
  Report Type: Spontaneous
  Country: US (occurrence: US)
  Receive Date: 20131125
  Receipt Date: 20131125
  Transmission Date: 20140711
  Serious: No
  Sender: FDA-Public Use
  Company Number: US-VIVUS-2013V1000265

PATIENT
  Age: 26 Year
  Sex: Female
  Weight: 93.07 kg

DRUGS (3)
  1. QSYMIA 3.75MG/23MG [Suspect]
     Indication: WEIGHT DECREASED
     Route: 048
     Dates: start: 20130329, end: 20130330
  2. LEVOTHYROXINE [Concomitant]
     Indication: THYROID HORMONE REPLACEMENT THERAPY
  3. FERROUS SULFATE [Concomitant]
     Indication: ANAEMIA
     Route: 048

REACTIONS (2)
  - Somnolence [Recovering/Resolving]
  - Palpitations [Recovering/Resolving]
